FAERS Safety Report 7447890-6 (Version None)
Quarter: 2011Q2

REPORT INFORMATION
  Report Type: 
  Country: None (occurrence: None)
  Receive Date: 20110429
  Receipt Date: 20100308
  Transmission Date: 20111010
  Serious: No
  Sender: FDA-Public Use
  Company Number: US-ASTRAZENECA-2010SE10067

PATIENT
  Age: 61 Year
  Sex: Female
  Weight: 81.6 kg

DRUGS (10)
  1. ESTROGENIC SUBSTANCE [Concomitant]
  2. TIZANIDINE [Concomitant]
     Indication: HYPOTONIA
  3. CITALOPRAM [Concomitant]
  4. NEXIUM [Suspect]
     Indication: GASTROOESOPHAGEAL REFLUX DISEASE
     Route: 048
     Dates: start: 20030101
  5. ALLEGRA D 24 HOUR [Concomitant]
  6. VALTREX [Concomitant]
  7. PROMETRIUM [Concomitant]
  8. LEVOTHYROXINE SODIUM [Concomitant]
  9. CRYSTALLINE VIT B12 INJ [Concomitant]
  10. IMMITREX [Concomitant]
     Indication: MIGRAINE

REACTIONS (3)
  - GASTROOESOPHAGEAL REFLUX DISEASE [None]
  - DRUG DOSE OMISSION [None]
  - VOMITING [None]
